FAERS Safety Report 5957889-4 (Version None)
Quarter: 2008Q4

REPORT INFORMATION
  Report Type: 
  Country: None (occurrence: None)
  Receive Date: 20081119
  Receipt Date: 20081113
  Transmission Date: 20090506
  Serious: Yes (Other)
  Sender: FDA-Public Use
  Company Number: US-BAYER-200836095NA

PATIENT
  Sex: Male

DRUGS (1)
  1. AVELOX [Suspect]
     Indication: BRONCHITIS
     Dosage: UNIT DOSE: 400 MG
     Route: 048

REACTIONS (5)
  - CHILLS [None]
  - HYPERSENSITIVITY [None]
  - RASH [None]
  - THROAT TIGHTNESS [None]
  - URTICARIA [None]
